FAERS Safety Report 23549898 (Version 1)
Quarter: 2024Q1

REPORT INFORMATION
  Report Type: Other
  Country: ES (occurrence: ES)
  Receive Date: 20240221
  Receipt Date: 20240221
  Transmission Date: 20240410
  Serious: Yes (Life-Threatening, Hospitalization)
  Sender: FDA-Public Use
  Company Number: None

PATIENT

DRUGS (3)
  1. RUXOLITINIB [Suspect]
     Active Substance: RUXOLITINIB
     Indication: Primary myelofibrosis
     Dosage: 5 MG, Q12H (1 CADA 12 HORAS)
     Route: 048
     Dates: start: 20221001, end: 20230209
  2. LEVOFLOXACIN [Concomitant]
     Active Substance: LEVOFLOXACIN
     Indication: Respiratory tract infection
     Dosage: 500 MG, Q24H (1 AL D?A)
     Route: 048
     Dates: start: 20230111, end: 20230117
  3. ATORVASTATINA [ATORVASTATIN CALCIUM] [Concomitant]
     Indication: Dyslipidaemia
     Dosage: 20 MG, Q24H (1 AL D?A)
     Route: 048
     Dates: start: 20220930

REACTIONS (2)
  - Necrotising fasciitis [Recovered/Resolved]
  - Septic shock [Recovered/Resolved]

NARRATIVE: CASE EVENT DATE: 20230209
